FAERS Safety Report 9629410 (Version 1)
Quarter: 2013Q4

REPORT INFORMATION
  Report Type: Spontaneous
  Country: US (occurrence: US)
  Receive Date: 20131017
  Receipt Date: 20131017
  Transmission Date: 20140711
  Serious: No
  Sender: FDA-Public Use
  Company Number: US-ASTRAZENECA-2013SE54105

PATIENT
  Age: 80 Year
  Sex: Female
  Weight: 63.5 kg

DRUGS (5)
  1. CRESTOR [Suspect]
     Indication: PROPHYLAXIS
     Route: 048
     Dates: start: 2013
  2. RECLAST [Concomitant]
     Indication: OSTEOARTHRITIS
     Dosage: YEAR
  3. DIOVAN [Concomitant]
     Indication: BLOOD PRESSURE ABNORMAL
     Dates: end: 2013
  4. VALSARTAN [Concomitant]
     Indication: BLOOD PRESSURE ABNORMAL
     Dates: start: 2013
  5. RAMIPRIL [Concomitant]
     Indication: BLOOD PRESSURE ABNORMAL

REACTIONS (3)
  - Back pain [Not Recovered/Not Resolved]
  - Muscle spasms [Not Recovered/Not Resolved]
  - Musculoskeletal chest pain [Not Recovered/Not Resolved]
